FAERS Safety Report 5443247-8 (Version None)
Quarter: 2007Q3

REPORT INFORMATION
  Report Type: 
  Country: None (occurrence: None)
  Receive Date: 20070831
  Receipt Date: 20070831
  Transmission Date: 20080115
  Serious: Yes (Hospitalization)
  Sender: FDA-Public Use
  Company Number: None

PATIENT
  Age: 56 Year
  Sex: Male
  Weight: 189 kg

DRUGS (12)
  1. BEVACIZUMAB D1, D15/ 28 D CYCLE [Suspect]
     Indication: PANCREATIC CARCINOMA METASTATIC
     Dosage: 10MG/M2 IV BOLUS
     Route: 040
     Dates: start: 20070323, end: 20070629
  2. GEMCITABINE [Suspect]
     Indication: PANCREATIC CARCINOMA METASTATIC
     Dosage: 1000MG/M2 IV BOLUS
     Route: 040
     Dates: start: 20070323, end: 20070629
  3. ERLOTINIB D1-D28/ 28 D CYCLE [Suspect]
     Indication: PANCREATIC CARCINOMA METASTATIC
     Dosage: 100 MG (ORAL)
     Route: 048
     Dates: start: 20070323, end: 20070713
  4. RAD001 D1-D28/28D CYCLE [Suspect]
     Indication: PANCREATIC CARCINOMA METASTATIC
     Dosage: 10 MG (ORAL)
     Route: 048
     Dates: start: 20070727, end: 20070804
  5. ASPIRIN [Concomitant]
  6. CELEBREX [Concomitant]
  7. COMPAZINE [Concomitant]
  8. DIOVAN [Concomitant]
  9. GLIMEPIRIDE [Concomitant]
  10. GLUCOPHAGE [Concomitant]
  11. JANUVIA [Concomitant]
  12. PROTONIX [Concomitant]

REACTIONS (7)
  - ANAL FISTULA [None]
  - PERINEAL ABSCESS [None]
  - PYREXIA [None]
  - SCROTAL ABSCESS [None]
  - THROMBOCYTOPENIA [None]
  - WHITE BLOOD CELL COUNT ABNORMAL [None]
  - WOUND COMPLICATION [None]
